FAERS Safety Report 14839497 (Version 1)
Quarter: 2018Q2

REPORT INFORMATION
  Report Type: Spontaneous
  Country: CA (occurrence: CA)
  Receive Date: 20180502
  Receipt Date: 20180502
  Transmission Date: 20180711
  Serious: Yes (Death)
  Sender: FDA-Public Use
  Company Number: CA-TEVA-2018-CA-886681

PATIENT
  Age: 55 Year
  Sex: Female
  Weight: 50 kg

DRUGS (4)
  1. PAROXETINE. [Suspect]
     Active Substance: PAROXETINE
     Route: 065
  2. CARFENTANIL [Suspect]
     Active Substance: CARFENTANIL
     Route: 065
  3. BENZOYLECGONINE [Suspect]
     Active Substance: BENZOYLECGONINE
     Route: 065
  4. ZOPICLONE [Suspect]
     Active Substance: ZOPICLONE
     Route: 065

REACTIONS (1)
  - Toxicity to various agents [Fatal]
